FAERS Safety Report 9190782 (Version 1)
Quarter: 2013Q1

REPORT INFORMATION
  Report Type: Spontaneous
  Country: US (occurrence: US)
  Receive Date: 20130326
  Receipt Date: 20130326
  Transmission Date: 20140127
  Serious: Yes (Other)
  Sender: FDA-Public Use
  Company Number: US-BAYER-2013-037057

PATIENT
  Age: 44 Year
  Sex: Male

DRUGS (6)
  1. KOGENATE FS [Suspect]
     Indication: ACQUIRED HAEMOPHILIA
  2. SIROLIMUS [Concomitant]
     Indication: PROPHYLAXIS AGAINST GRAFT VERSUS HOST DISEASE
  3. SIROLIMUS [Concomitant]
     Indication: PROPHYLAXIS AGAINST GRAFT VERSUS HOST DISEASE
  4. BACTRIM [Concomitant]
     Indication: ANTIFUNGAL PROPHYLAXIS
  5. PENICILLIN VK [Concomitant]
  6. HUMATE-P [Concomitant]
     Indication: ACQUIRED HAEMOPHILIA
     Dosage: 3000 U, BID

REACTIONS (1)
  - Drug ineffective [None]
